FAERS Safety Report 6978581-3 (Version None)
Quarter: 2010Q3

REPORT INFORMATION
  Report Type: 
  Country: None (occurrence: None)
  Receive Date: 20100913
  Receipt Date: 20100903
  Transmission Date: 20110219
  Serious: Yes (Hospitalization)
  Sender: FDA-Public Use
  Company Number: US-PURDUE-USA-2010-0046614

PATIENT
  Sex: Male

DRUGS (1)
  1. OXYCONTIN [Suspect]
     Indication: PAIN
     Dosage: 80 MG, TWICE

REACTIONS (4)
  - OEDEMA PERIPHERAL [None]
  - SWELLING FACE [None]
  - TESTICULAR HAEMORRHAGE [None]
  - TESTICULAR SWELLING [None]
